FAERS Safety Report 7522511-2 (Version None)
Quarter: 2011Q2

REPORT INFORMATION
  Report Type: 
  Country: None (occurrence: None)
  Receive Date: 20110603
  Receipt Date: 20110530
  Transmission Date: 20111010
  Serious: Yes (Death)
  Sender: FDA-Public Use
  Company Number: NL-PFIZER INC-2011116309

PATIENT
  Age: 65 Year
  Sex: Male
  Weight: 105 kg

DRUGS (4)
  1. HIDROCORTIZON [Concomitant]
     Indication: HYPOPITUITARISM
     Dosage: 30 MG, 2X/DAY
     Route: 048
     Dates: start: 19951009, end: 20110308
  2. SOMATROPIN [Suspect]
     Indication: HYPOPITUITARISM
     Dosage: 0.3 MG, 1X/DAY
     Route: 058
     Dates: start: 19990112, end: 20110307
  3. THYRAX [Concomitant]
     Indication: HYPOTHYROIDISM
     Dosage: 200 UG, UNK
     Route: 048
     Dates: start: 19951009, end: 20110308
  4. ANDROGEL [Concomitant]
     Indication: HYPOGONADISM
     Dosage: 50 MG, 1X/DAY
     Route: 062
     Dates: start: 19951009

REACTIONS (1)
  - DEATH [None]
